FAERS Safety Report 5937077-8 (Version None)
Quarter: 2008Q4

REPORT INFORMATION
  Report Type: 
  Country: None (occurrence: None)
  Receive Date: 20081031
  Receipt Date: 20081020
  Transmission Date: 20090506
  Serious: Yes (Other)
  Sender: FDA-Public Use
  Company Number: BR-ROCHE-592832

PATIENT
  Age: 70 Year
  Sex: Female
  Weight: 55 kg

DRUGS (5)
  1. RIVOTRIL [Suspect]
     Indication: DRUG USE FOR UNKNOWN INDICATION
     Dosage: STRENGTH: 2.5 MG/ML, START DATE: MARCH OR APRIL
     Route: 048
     Dates: start: 20080101, end: 20080701
  2. RIVOTRIL [Suspect]
     Dosage: STRENGTH: 2.5 MG/ML
     Route: 048
     Dates: start: 20080701
  3. SEROQUEL [Concomitant]
     Indication: SCHIZOPHRENIA
     Route: 048
  4. EFFEXOR [Concomitant]
     Indication: DEPRESSION
     Dosage: START DATE: 1999 OR 2000
     Route: 048
  5. DEPAKOTE [Concomitant]
     Dosage: START DATE: 1999 OR 2000
     Route: 048

REACTIONS (5)
  - CONFUSIONAL STATE [None]
  - HEADACHE [None]
  - LABYRINTHITIS [None]
  - SYNCOPE [None]
  - VISUAL IMPAIRMENT [None]
